FAERS Safety Report 11125699 (Version 3)
Quarter: 2015Q3

REPORT INFORMATION
  Report Type: Spontaneous
  Country: US (occurrence: US)
  Receive Date: 20150520
  Receipt Date: 20150708
  Transmission Date: 20151125
  Serious: Yes (Death)
  Sender: FDA-Public Use
  Company Number: US-PFIZER INC-2015171800

PATIENT
  Age: 69 Year
  Sex: Female
  Weight: 72.56 kg

DRUGS (2)
  1. SUTENT [Suspect]
     Active Substance: SUNITINIB MALATE
     Dosage: 100 MG, DAILY (25 MG CAPSULES, 4 CAPSULE BY MOUTH DAILY FOR FOURTEEN DAYS)
     Route: 048
  2. SUTENT [Suspect]
     Active Substance: SUNITINIB MALATE
     Indication: GASTRIC CANCER
     Dosage: 50 MG, DAILY (12.5 MG CAPSULES, HARD 4 CAPSULES BY MOUTH DAILY FOR 14 DAYS)
     Route: 048

REACTIONS (3)
  - Gastric cancer [Fatal]
  - Disease progression [Fatal]
  - Product use issue [Unknown]
